FAERS Safety Report 20923079 (Version 1)
Quarter: 2022Q2

REPORT INFORMATION
  Report Type: Spontaneous
  Country: CA (occurrence: CA)
  Receive Date: 20220607
  Receipt Date: 20220607
  Transmission Date: 20220721
  Serious: Yes (Life-Threatening, Hospitalization)
  Sender: FDA-Public Use
  Company Number: CA-TEVA-2022-CA-2042666

PATIENT
  Age: 76 Year
  Sex: Male
  Weight: 80 kg

DRUGS (21)
  1. CARBOPLATIN [Suspect]
     Active Substance: CARBOPLATIN
     Indication: Lung adenocarcinoma
     Route: 042
  2. PEGFILGRASTIM [Suspect]
     Active Substance: PEGFILGRASTIM
     Indication: Prophylaxis
     Route: 058
  3. ALLOPURINOL [Concomitant]
     Active Substance: ALLOPURINOL
  4. CETIRIZINE [Concomitant]
     Active Substance: CETIRIZINE HYDROCHLORIDE
  5. DECADRON [Concomitant]
     Active Substance: DEXAMETHASONE
  6. DEXLANSOPRAZOLE [Concomitant]
     Active Substance: DEXLANSOPRAZOLE
  7. ERYTHROMYCIN [Concomitant]
     Active Substance: ERYTHROMYCIN
  8. FOLIC ACID [Concomitant]
     Active Substance: FOLIC ACID
  9. HYDROMORPHONE [Concomitant]
     Active Substance: HYDROMORPHONE
  10. PEGFILGRASTIM [Concomitant]
     Active Substance: PEGFILGRASTIM
  11. NYSTATIN [Concomitant]
     Active Substance: NYSTATIN
  12. ONDANSETRON [Concomitant]
     Active Substance: ONDANSETRON
  13. ORPHENADRINE [Concomitant]
     Active Substance: ORPHENADRINE
  14. PEMETREXED [Concomitant]
     Active Substance: PEMETREXED
  15. PRAMIPEXOLE [Concomitant]
     Active Substance: PRAMIPEXOLE
  16. PROCHLORPERAZINE [Concomitant]
     Active Substance: PROCHLORPERAZINE
  17. RAPAFLO [Concomitant]
     Active Substance: SILODOSIN
  18. ROSUVASTATIN [Concomitant]
     Active Substance: ROSUVASTATIN
     Route: 065
  19. ALBUTEROL [Concomitant]
     Active Substance: ALBUTEROL
  20. SUCRALFATE [Concomitant]
     Active Substance: SUCRALFATE
  21. VITAMIN D [Concomitant]
     Active Substance: VITAMIN D NOS

REACTIONS (5)
  - Aortic aneurysm [Recovering/Resolving]
  - Aortitis [Recovering/Resolving]
  - Back pain [Recovering/Resolving]
  - Fatigue [Recovering/Resolving]
  - Pain [Recovering/Resolving]
